FAERS Safety Report 9523988 (Version 1)
Quarter: 2013Q1

REPORT INFORMATION
  Report Type: Spontaneous
  Country: US (occurrence: None)
  Receive Date: 20130305
  Receipt Date: 20130305
  Transmission Date: 20140127
  Serious: Yes (Hospitalization)
  Sender: FDA-Public Use
  Company Number: 163-21880-12070814

PATIENT
  Age: 75 Year
  Sex: Female

DRUGS (4)
  1. REVLIMID [Suspect]
     Indication: MYELODYSPLASTIC SYNDROME
     Route: 048
     Dates: start: 20120622
  2. DILTIAZEM HCL (DILTIAZEM HYDROCHLORIDE) [Concomitant]
  3. VINCRISTINE SULFATE (VINCRISTINE SULFATE) [Concomitant]
  4. METOPROLOL TARTATE (METOPROLOL TARTRATE) [Concomitant]

REACTIONS (1)
  - Neutropenia [None]
